FAERS Safety Report 16363096 (Version 1)
Quarter: 2019Q2

REPORT INFORMATION
  Report Type: Spontaneous
  Country: GB (occurrence: GB)
  Receive Date: 20190528
  Receipt Date: 20190528
  Transmission Date: 20190711
  Serious: Yes (Other)
  Sender: FDA-Public Use
  Company Number: GB-MYLANLABS-2019M1048971

PATIENT
  Age: 75 Year
  Sex: Male
  Weight: 86 kg

DRUGS (11)
  1. CLARITHROMYCIN. [Suspect]
     Active Substance: CLARITHROMYCIN
     Indication: PRODUCT USED FOR UNKNOWN INDICATION
     Dosage: 500 MILLIGRAM
     Route: 065
     Dates: start: 20181005
  2. CLARITHROMYCIN. [Concomitant]
     Active Substance: CLARITHROMYCIN
     Dosage: 1 DOSAGE FORM, BID
     Dates: start: 20180926, end: 20181003
  3. CLENIL MODULITE [Concomitant]
     Active Substance: BECLOMETHASONE DIPROPIONATE
     Dosage: 4 DOSAGE FORM, QD
     Route: 055
     Dates: start: 20180719
  4. FEXOFENADINE [Concomitant]
     Active Substance: FEXOFENADINE\FEXOFENADINE HYDROCHLORIDE
     Dosage: 1 DOSAGE FORM, QD
     Dates: start: 20180719
  5. SILDENAFIL. [Concomitant]
     Active Substance: SILDENAFIL
     Dosage: USE AS DIRECTED.
     Dates: start: 20170727
  6. SALAMOL                            /00139502/ [Concomitant]
     Dosage: 2 DOSAGE FORM, PRN
     Route: 055
     Dates: start: 20180102
  7. ALLOPURINOL. [Concomitant]
     Active Substance: ALLOPURINOL
     Dosage: 1 DOSAGE FORM, QD
     Dates: start: 20180706
  8. SOLARAZE [Concomitant]
     Active Substance: DICLOFENAC SODIUM
     Dosage: 2 DOSAGE FORM APPLY THINLY.
     Dates: start: 20180823, end: 20180824
  9. AVAMYS [Concomitant]
     Active Substance: FLUTICASONE FUROATE
     Dosage: 2 DOSAGE FORM, QD IN EACH NOSTRIL.
     Route: 045
     Dates: start: 20180925
  10. NYSTAN [Concomitant]
     Active Substance: NYSTATIN
     Dosage: 4 MILLILITER, QD
     Route: 048
     Dates: start: 20180926, end: 20181003
  11. DERMOL                             /01330701/ [Concomitant]
     Dosage: UNK UNK, PRN
     Dates: start: 20180823, end: 20180824

REACTIONS (3)
  - Arthralgia [Unknown]
  - Headache [Recovered/Resolved]
  - Dysgeusia [Unknown]

NARRATIVE: CASE EVENT DATE: 20181005
